FAERS Safety Report 15743453 (Version 6)
Quarter: 2019Q3

REPORT INFORMATION
  Report Type: Spontaneous
  Country: US (occurrence: US)
  Receive Date: 20181220
  Receipt Date: 20190722
  Transmission Date: 20191004
  Serious: Yes (Other)
  Sender: FDA-Public Use
  Company Number: US-BIOGEN-2018BI00642284

PATIENT
  Sex: Male

DRUGS (1)
  1. TYSABRI [Suspect]
     Active Substance: NATALIZUMAB
     Indication: MULTIPLE SCLEROSIS
     Route: 050
     Dates: start: 20090910, end: 20180727

REACTIONS (6)
  - Multiple sclerosis [Unknown]
  - Urinary tract infection [Recovered/Resolved]
  - Paralysis [Unknown]
  - Intervertebral disc protrusion [Unknown]
  - Fall [Recovered/Resolved]
  - Stenosis [Unknown]
